FAERS Safety Report 5656103-7 (Version None)
Quarter: 2008Q1

REPORT INFORMATION
  Report Type: 
  Country: None (occurrence: None)
  Receive Date: 20080305
  Receipt Date: 20060113
  Transmission Date: 20080703
  Serious: Yes (Death)
  Sender: FDA-Public Use
  Company Number: 20084797

PATIENT
  Age: 65 Year
  Sex: Female

DRUGS (5)
  1. LIORESAL [Suspect]
     Indication: MUSCLE SPASTICITY
     Dosage: 400.0 MCG, DAILY, INTRATHECAL
     Route: 037
  2. FENTANYL [Concomitant]
  3. CLONIDINE [Concomitant]
  4. BUPIVACAINE [Concomitant]
  5. HYDROMORPHONE HCL [Concomitant]

REACTIONS (1)
  - NEOPLASM MALIGNANT [None]
